FAERS Safety Report 10175965 (Version 2)
Quarter: 2014Q2

REPORT INFORMATION
  Report Type: Spontaneous
  Country: US (occurrence: US)
  Receive Date: 20140516
  Receipt Date: 20140523
  Transmission Date: 20141212
  Serious: Yes (Hospitalization, Other)
  Sender: FDA-Public Use
  Company Number: US-AMGEN INC.-USASP2014035937

PATIENT
  Age: 69 Year
  Sex: Female

DRUGS (2)
  1. ENBREL [Suspect]
     Indication: RHEUMATOID ARTHRITIS
     Dosage: 50 MG, QWK
     Route: 065
     Dates: start: 20110701
  2. PLAQUENIL                          /00072603/ [Suspect]
     Indication: PRODUCT USED FOR UNKNOWN INDICATION
     Dosage: UNK MG, FOR ABOUT 2 YEARS
     Route: 065

REACTIONS (7)
  - Hypertension [Recovered/Resolved]
  - Body temperature increased [Recovered/Resolved]
  - Oxygen saturation decreased [Recovered/Resolved]
  - Urinary tract infection [Recovered/Resolved]
  - Visual acuity reduced [Not Recovered/Not Resolved]
  - Peripheral swelling [Recovered/Resolved]
  - Rash [Recovered/Resolved]
